FAERS Safety Report 6741190-5 (Version None)
Quarter: 2010Q2

REPORT INFORMATION
  Report Type: 
  Country: None (occurrence: None)
  Receive Date: 20100526
  Receipt Date: 20100517
  Transmission Date: 20101027
  Serious: Yes (Other)
  Sender: FDA-Public Use
  Company Number: JP-ELI_LILLY_AND_COMPANY-JP201005004288

PATIENT
  Age: 64 Year
  Sex: Female
  Weight: 61.5 kg

DRUGS (14)
  1. EXENATIDE [Suspect]
     Indication: TYPE 2 DIABETES MELLITUS
     Dosage: 5 UG, UNK
     Route: 058
     Dates: start: 20091013, end: 20091108
  2. EXENATIDE [Suspect]
     Dosage: 10 UG, 2/D
     Route: 058
     Dates: start: 20091109, end: 20100411
  3. EXENATIDE LONG ACTING RELEASE 2MG [Suspect]
     Indication: TYPE 2 DIABETES MELLITUS
     Dosage: 2 MG, UNK
     Route: 058
     Dates: start: 20100412, end: 20100418
  4. AMARYL [Concomitant]
     Indication: TYPE 2 DIABETES MELLITUS
     Dosage: 2 MG, DAILY (1/D)
     Route: 048
     Dates: start: 20090206, end: 20091012
  5. AMARYL [Concomitant]
     Dosage: 1 MG, DAILY (1/D)
     Route: 048
     Dates: start: 20091013
  6. NELBIS [Concomitant]
     Indication: TYPE 2 DIABETES MELLITUS
     Dosage: 250 MG, 2/D
     Route: 048
     Dates: start: 20090521, end: 20100421
  7. NELBIS [Concomitant]
     Dosage: 500 MG, 2/D
     Route: 048
     Dates: start: 20100422
  8. LIPITOR [Concomitant]
     Indication: HYPERLIPIDAEMIA
     Dosage: 10 MG, DAILY (1/D)
     Route: 048
     Dates: start: 20090409
  9. ARTIST [Concomitant]
     Indication: HYPERTENSION
     Dosage: 10 MG, DAILY (1/D)
     Route: 048
     Dates: start: 20081030
  10. KETOPROFEN [Concomitant]
     Indication: RADICULITIS CERVICAL
     Dosage: 40 MG, DAILY (1/D)
     Route: 062
     Dates: start: 20090928
  11. MAGLAX /JPN/ [Concomitant]
     Dosage: UNK, UNKNOWN
     Route: 048
     Dates: start: 20091029
  12. LAXOBERON [Concomitant]
     Dosage: UNK, UNKNOWN
     Route: 048
     Dates: start: 20091029
  13. RADEN [Concomitant]
     Dosage: UNK, UNKNOWN
     Route: 065
     Dates: start: 20091207
  14. ALLELOCK [Concomitant]
     Indication: SEASONAL ALLERGY
     Dosage: 5 MG, DAILY (1/D)
     Route: 048
     Dates: start: 20100201

REACTIONS (1)
  - THYROID CANCER [None]
